FAERS Safety Report 7994018-X (Version None)
Quarter: 2011Q4

REPORT INFORMATION
  Report Type: 
  Country: None (occurrence: None)
  Receive Date: 20111220
  Receipt Date: 20111208
  Transmission Date: 20120403
  Serious: Yes (Hospitalization, Other)
  Sender: FDA-Public Use
  Company Number: US-BAYER-2011-100148

PATIENT
  Age: 28 Year
  Sex: Female
  Weight: 97.506 kg

DRUGS (12)
  1. CLONAZEPAM [Concomitant]
     Indication: SLEEP APNOEA SYNDROME
  2. CLONAZEPAM [Concomitant]
     Indication: INSOMNIA
  3. GUANFACINE HYDROCHLORIDE [Concomitant]
     Indication: HYPERTENSION
     Dosage: UNK UNK, QD
  4. NAPROXEN [Concomitant]
     Indication: PAIN
     Dosage: UNK UNK, QD
  5. CLONAZEPAM [Concomitant]
     Indication: ANXIETY
     Dosage: 1 MG, QD
  6. NAPROXEN [Concomitant]
     Indication: SWELLING
  7. ANTIBIOTICS [Concomitant]
  8. EXFORGE [Concomitant]
     Indication: HYPERTENSION
     Dosage: 5/160 MG DAILY
  9. GABAPENTIN [Concomitant]
     Indication: BIPOLAR DISORDER
     Dosage: 300 MG 1 THREE TIMES DAILY
  10. YAZ [Suspect]
     Indication: CONTRACEPTION
     Dosage: UNK
     Dates: start: 20080801, end: 20090601
  11. SEROQUEL [Concomitant]
     Indication: BIPOLAR DISORDER
     Dosage: UNK UNK, QD
  12. CYMBALTA [Concomitant]
     Indication: BIPOLAR DISORDER
     Dosage: UNK UNK, QD

REACTIONS (9)
  - CHOLECYSTITIS CHRONIC [None]
  - GALLBLADDER DISORDER [None]
  - NAUSEA [None]
  - ANXIETY [None]
  - ANHEDONIA [None]
  - INJURY [None]
  - PAIN [None]
  - CHOLELITHIASIS [None]
  - VOMITING [None]
